FAERS Safety Report 7655395-2 (Version None)
Quarter: 2011Q3

REPORT INFORMATION
  Report Type: 
  Country: None (occurrence: None)
  Receive Date: 20110804
  Receipt Date: 20110726
  Transmission Date: 20111222
  Serious: Yes (Hospitalization)
  Sender: FDA-Public Use
  Company Number: IE-JNJFOC-20110610579

PATIENT
  Age: 21 Year
  Sex: Male

DRUGS (4)
  1. HYDROCORTISONE [Concomitant]
     Indication: COLITIS ULCERATIVE
     Route: 042
  2. INFLIXIMAB, RECOMBINANT [Suspect]
     Route: 042
  3. INFLIXIMAB, RECOMBINANT [Suspect]
     Indication: COLITIS ULCERATIVE
     Route: 042
  4. MESALAMINE [Concomitant]
     Dosage: FREQUENCY OD

REACTIONS (2)
  - MYOCARDITIS [None]
  - SERUM SICKNESS [None]
